FAERS Safety Report 7530199-X (Version None)
Quarter: 2011Q2

REPORT INFORMATION
  Report Type: 
  Country: None (occurrence: None)
  Receive Date: 20110607
  Receipt Date: 20110527
  Transmission Date: 20111010
  Serious: Yes (Other)
  Sender: FDA-Public Use
  Company Number: A0929510A

PATIENT
  Age: 45 Year
  Sex: Female

DRUGS (4)
  1. VITAMIN TAB [Concomitant]
  2. PREVACID [Concomitant]
  3. ALLI [Suspect]
     Indication: WEIGHT LOSS DIET
     Route: 048
  4. ZYRTEC [Concomitant]

REACTIONS (4)
  - ABDOMINAL PAIN UPPER [None]
  - DRUG ADMINISTRATION ERROR [None]
  - HAEMATOCHEZIA [None]
  - FLATULENCE [None]
